FAERS Safety Report 7520873-3 (Version None)
Quarter: 2011Q2

REPORT INFORMATION
  Report Type: 
  Country: None (occurrence: None)
  Receive Date: 20110603
  Receipt Date: 20101117
  Transmission Date: 20111010
  Serious: Yes (Hospitalization, Disabling, Other)
  Sender: FDA-Public Use
  Company Number: BR-BAYER-201014858LA

PATIENT
  Age: 44 Year
  Sex: Female

DRUGS (7)
  1. BETAFERON [Suspect]
     Indication: SECONDARY PROGRESSIVE MULTIPLE SCLEROSIS
     Dosage: BETAJECT
     Route: 058
  2. AMITRIPTYLINE HCL [Concomitant]
     Indication: DEPRESSION
     Route: 048
     Dates: start: 19990101
  3. LIORESAL [Concomitant]
     Indication: MULTIPLE SCLEROSIS RELAPSE
     Route: 048
     Dates: start: 20080101
  4. YAZ [Suspect]
     Indication: PREMENSTRUAL SYNDROME
     Dosage: AS USED DOSE: UNK
     Route: 048
     Dates: start: 20081001
  5. OMEPRAZOLE [Concomitant]
     Indication: HOSPITALISATION
     Route: 048
     Dates: start: 20100801
  6. BETAFERON [Suspect]
     Dosage: BETAJECT
     Route: 058
     Dates: start: 19991101
  7. NITROFURANTOIN [Concomitant]
     Indication: MULTIPLE SCLEROSIS
     Route: 048
     Dates: start: 20020101

REACTIONS (18)
  - MUSCULAR WEAKNESS [None]
  - GAIT DISTURBANCE [None]
  - ANAEMIA [None]
  - OPTIC NEURITIS [None]
  - BLINDNESS [None]
  - MULTIPLE SCLEROSIS [None]
  - VISION BLURRED [None]
  - HEADACHE [None]
  - FRACTURED COCCYX [None]
  - MUSCLE SPASTICITY [None]
  - VISUAL ACUITY REDUCED [None]
  - MULTIPLE SCLEROSIS RELAPSE [None]
  - HOSPITALISATION [None]
  - DEPRESSION [None]
  - SPINAL COLUMN INJURY [None]
  - BONE PAIN [None]
  - MUSCULOSKELETAL PAIN [None]
  - URINARY TRACT INFECTION [None]
